FAERS Safety Report 20059754 (Version 1)
Quarter: 2021Q4

REPORT INFORMATION
  Report Type: Spontaneous
  Country: FR (occurrence: FR)
  Receive Date: 20211111
  Receipt Date: 20211111
  Transmission Date: 20220303
  Serious: Yes (Hospitalization)
  Sender: FDA-Public Use
  Company Number: None

PATIENT
  Age: 32 Year
  Sex: Male

DRUGS (5)
  1. LANSOPRAZOLE [Suspect]
     Active Substance: LANSOPRAZOLE
     Indication: Gastrooesophageal reflux disease
     Dosage: 30 MILLIGRAM, QD
     Route: 048
  2. MODERNA COVID-19 VACCINE [Suspect]
     Active Substance: CX-024414
     Indication: COVID-19 immunisation
     Dosage: 1 DOSAGE FORM
     Route: 030
     Dates: start: 20210407, end: 20210407
  3. DANTRIUM [Concomitant]
     Active Substance: DANTROLENE SODIUM
     Dosage: 1 DOSAGE FORM, QD
     Route: 048
     Dates: start: 20210330, end: 20210416
  4. LEVETIRACETAM [Concomitant]
     Active Substance: LEVETIRACETAM
     Dosage: 2 GRAM, QD
     Route: 048
     Dates: start: 20210305
  5. ISTINE [Concomitant]
     Dosage: 16 MILLIGRAM, QD
     Route: 048
     Dates: start: 20210308

REACTIONS (2)
  - Hypomagnesaemia [Unknown]
  - Generalised tonic-clonic seizure [Recovering/Resolving]

NARRATIVE: CASE EVENT DATE: 20210415
